FAERS Safety Report 10144518 (Version 1)
Quarter: 2014Q2

REPORT INFORMATION
  Report Type: Spontaneous
  Country: US (occurrence: US)
  Receive Date: 20140430
  Receipt Date: 20140430
  Transmission Date: 20141212
  Serious: No
  Sender: FDA-Public Use
  Company Number: US-SA-2014SA030802

PATIENT
  Age: 53 Year
  Sex: Female
  Weight: 82 kg

DRUGS (2)
  1. LOVENOX [Suspect]
     Indication: KNEE ARTHROPLASTY
     Route: 065
     Dates: start: 20140121, end: 20140201
  2. NORCO [Concomitant]
     Indication: SURGERY
     Dates: start: 20140123

REACTIONS (3)
  - Injection site vesicles [Not Recovered/Not Resolved]
  - Condition aggravated [Not Recovered/Not Resolved]
  - Pain [Not Recovered/Not Resolved]
